FAERS Safety Report 9934743 (Version 2)
Quarter: 2014Q2

REPORT INFORMATION
  Report Type: Not Available
  Country: SE (occurrence: SE)
  Receive Date: 20140228
  Receipt Date: 20140428
  Transmission Date: 20141212
  Serious: Yes (Other)
  Sender: FDA-Public Use
  Company Number: SE-IAC JAPAN XML-GBR-2014-0017152

PATIENT
  Age: 48 Year
  Sex: Male
  Weight: 108 kg

DRUGS (5)
  1. NORSPAN 20 MIKROGRAM/ TIMME DEPOTPLASTER [Suspect]
     Indication: ANALGESIC THERAPY
     Dosage: 20 MCG, Q1H (1 PATCH APPLIED)
     Route: 062
     Dates: start: 20140202
  2. NORSPAN 20 MIKROGRAM/ TIMME DEPOTPLASTER [Suspect]
     Dosage: 40 MCG, Q1H (2 PATCHES APPLIED)
     Route: 062
     Dates: start: 20140120, end: 20140202
  3. NORSPAN 20 MIKROGRAM/ TIMME DEPOTPLASTER [Suspect]
     Dosage: 20 MCG, Q1H (1 PATCH APPLIED)
     Route: 062
     Dates: end: 20140120
  4. NOBLIGAN [Concomitant]
     Indication: PAIN
     Dosage: 50 MG, UNK
  5. PROPAVAN [Concomitant]
     Dosage: 25 MG, UNK

REACTIONS (7)
  - Fatigue [Not Recovered/Not Resolved]
  - Dizziness [Recovering/Resolving]
  - Pain of skin [Recovering/Resolving]
  - Hyperhidrosis [Recovering/Resolving]
  - Pruritus [Recovering/Resolving]
  - Dyspnoea [Recovering/Resolving]
  - Tremor [Recovering/Resolving]
